FAERS Safety Report 5234635-3 (Version None)
Quarter: 2007Q1

REPORT INFORMATION
  Report Type: 
  Country: None (occurrence: None)
  Receive Date: 20070209
  Receipt Date: 20070125
  Transmission Date: 20070707
  Serious: Yes (Hospitalization)
  Sender: FDA-Public Use
  Company Number: GB-BRISTOL-MYERS SQUIBB COMPANY-13672183

PATIENT
  Age: 53 Year
  Sex: Male

DRUGS (5)
  1. CETUXIMAB [Suspect]
     Indication: COLORECTAL CANCER
     Dates: start: 20061221, end: 20061221
  2. OXALIPLATIN [Suspect]
     Indication: COLORECTAL CANCER
     Dates: start: 20061129, end: 20061129
  3. CAPECITABINE [Suspect]
     Indication: COLORECTAL CANCER
     Dates: start: 20061207, end: 20061207
  4. MAGNESIUM PHOSPHATE [Concomitant]
     Route: 048
     Dates: start: 20060810
  5. POTASSIUM CHLORIDE [Concomitant]
     Route: 048
     Dates: start: 20060831

REACTIONS (5)
  - CEREBRAL INFARCTION [None]
  - DECREASED IMMUNE RESPONSIVENESS [None]
  - ENDOCARDITIS STAPHYLOCOCCAL [None]
  - HEMIPARESIS [None]
  - PERSONALITY CHANGE [None]
